FAERS Safety Report 21054975 (Version 5)
Quarter: 2022Q4

REPORT INFORMATION
  Report Type: Other
  Country: CA (occurrence: None)
  Receive Date: 20220707
  Receipt Date: 20221129
  Transmission Date: 20230112
  Serious: Yes (Other)
  Sender: FDA-Public Use
  Company Number: CA-ROCHE-1462689

PATIENT
  Age: 60 Year
  Sex: Male
  Weight: 100 kg

DRUGS (16)
  1. ACTEMRA [Suspect]
     Active Substance: TOCILIZUMAB
     Indication: Rheumatoid arthritis
     Route: 042
     Dates: start: 20140624
  2. ACTEMRA [Suspect]
     Active Substance: TOCILIZUMAB
     Route: 042
     Dates: start: 201604
  3. ACTEMRA [Suspect]
     Active Substance: TOCILIZUMAB
     Route: 042
     Dates: start: 20180703
  4. ACTEMRA [Suspect]
     Active Substance: TOCILIZUMAB
     Route: 042
     Dates: start: 20180801
  5. ACTEMRA [Suspect]
     Active Substance: TOCILIZUMAB
     Route: 042
     Dates: start: 20200630, end: 20200630
  6. ACTEMRA [Suspect]
     Active Substance: TOCILIZUMAB
     Route: 042
     Dates: start: 20200728
  7. ACTEMRA [Suspect]
     Active Substance: TOCILIZUMAB
     Route: 042
     Dates: end: 20200603
  8. METHOTREXATE [Suspect]
     Active Substance: METHOTREXATE
     Indication: Product used for unknown indication
     Route: 048
     Dates: start: 2013
  9. METHOTREXATE [Suspect]
     Active Substance: METHOTREXATE
     Route: 065
     Dates: start: 2013
  10. CELEBREX [Concomitant]
     Active Substance: CELECOXIB
  11. PREDNISONE [Concomitant]
     Active Substance: PREDNISONE
  12. HERBALS\TURMERIC [Concomitant]
     Active Substance: HERBALS\TURMERIC
  13. SULFASALAZINE [Concomitant]
     Active Substance: SULFASALAZINE
  14. FOLIC ACID [Concomitant]
     Active Substance: FOLIC ACID
  15. LEUCOVORIN [Concomitant]
     Active Substance: LEUCOVORIN
     Route: 048
  16. TYLENOL EXTRA STRENGTH [Concomitant]
     Active Substance: ACETAMINOPHEN
     Route: 048

REACTIONS (22)
  - Cerebrospinal fluid leakage [Unknown]
  - Herpes zoster [Recovered/Resolved]
  - Weight increased [Not Recovered/Not Resolved]
  - Infection [Unknown]
  - Infusion related reaction [Unknown]
  - Weight decreased [Unknown]
  - Body temperature decreased [Unknown]
  - Blood pressure increased [Unknown]
  - Rash erythematous [Not Recovered/Not Resolved]
  - Pruritus [Not Recovered/Not Resolved]
  - Constipation [Recovered/Resolved]
  - Nasopharyngitis [Recovering/Resolving]
  - Drug hypersensitivity [Unknown]
  - Blood pressure systolic increased [Unknown]
  - Blood pressure systolic abnormal [Unknown]
  - Thermal burn [Recovering/Resolving]
  - Incorrect drug administration rate [Unknown]
  - Pain [Not Recovered/Not Resolved]
  - Off label use [Unknown]
  - Heart rate decreased [Unknown]
  - Headache [Not Recovered/Not Resolved]
  - Arthralgia [Unknown]

NARRATIVE: CASE EVENT DATE: 20141126
